FAERS Safety Report 5221455-9 (Version None)
Quarter: 2007Q1

REPORT INFORMATION
  Report Type: 
  Country: None (occurrence: None)
  Receive Date: 20070126
  Receipt Date: 20070118
  Transmission Date: 20070707
  Serious: Yes (Other)
  Sender: FDA-Public Use
  Company Number: ES-MERCK-0701ESP00026

PATIENT
  Age: 46 Year
  Sex: Female

DRUGS (14)
  1. PRIMAXIN [Suspect]
     Indication: SEPSIS
     Route: 065
     Dates: start: 20050311, end: 20050319
  2. PRIMAXIN [Suspect]
     Indication: BRAIN ABSCESS
     Route: 065
     Dates: start: 20050311, end: 20050319
  3. VANCOMYCIN [Concomitant]
     Indication: SEPSIS
     Route: 065
     Dates: start: 20050301, end: 20050311
  4. VANCOMYCIN [Concomitant]
     Indication: BRAIN ABSCESS
     Route: 065
     Dates: start: 20050301, end: 20050311
  5. METRONIDAZOLE [Concomitant]
     Indication: SEPSIS
     Route: 065
     Dates: start: 20050301
  6. METRONIDAZOLE [Concomitant]
     Indication: BRAIN ABSCESS
     Route: 065
     Dates: start: 20050301
  7. PHENYTOIN [Concomitant]
     Route: 065
     Dates: start: 20050301, end: 20050309
  8. GABAPENTIN [Concomitant]
     Route: 065
     Dates: start: 20050309
  9. VALPROATE SODIUM [Suspect]
     Indication: GRAND MAL CONVULSION
     Route: 041
     Dates: start: 20050315, end: 20050315
  10. VALPROATE SODIUM [Suspect]
     Route: 041
     Dates: start: 20050315, end: 20050316
  11. VALPROATE SODIUM [Suspect]
     Route: 041
     Dates: start: 20050316, end: 20050317
  12. VALPROATE SODIUM [Suspect]
     Route: 041
     Dates: start: 20050318, end: 20050319
  13. VALPROATE SODIUM [Suspect]
     Route: 048
     Dates: start: 20050319, end: 20050408
  14. VALPROATE SODIUM [Suspect]
     Route: 041
     Dates: start: 20050316, end: 20050316

REACTIONS (3)
  - DRUG INTERACTION [None]
  - DRUG LEVEL DECREASED [None]
  - GRAND MAL CONVULSION [None]
